FAERS Safety Report 18594967 (Version 1)
Quarter: 2020Q4

REPORT INFORMATION
  Report Type: Spontaneous
  Country: US (occurrence: US)
  Receive Date: 20201209
  Receipt Date: 20201209
  Transmission Date: 20210114
  Serious: Yes (Hospitalization, Other)
  Sender: FDA-Public Use
  Company Number: US-PFIZER INC-2019479367

PATIENT
  Age: 73 Year
  Sex: Female
  Weight: 78.02 kg

DRUGS (3)
  1. DIGOXIN. [Concomitant]
     Active Substance: DIGOXIN
     Indication: CARDIAC AMYLOIDOSIS
     Dosage: ^125 MG^ ALTERNATE DAY (ON MONDAY, WEDNESDAY, AND FRIDAY)
     Route: 048
  2. VYNDAQEL [Suspect]
     Active Substance: TAFAMIDIS MEGLUMINE
     Indication: CARDIAC AMYLOIDOSIS
     Dosage: 80 MG, 1X/DAY (4 CAPSULES ONCE A DAY)
     Route: 048
     Dates: start: 201910
  3. VYNDAQEL [Suspect]
     Active Substance: TAFAMIDIS MEGLUMINE
     Indication: AMYLOIDOSIS

REACTIONS (3)
  - Haemorrhage [Unknown]
  - Product prescribing error [Unknown]
  - Intentional product misuse [Unknown]
